FAERS Safety Report 23395847 (Version 1)
Quarter: 2024Q1

REPORT INFORMATION
  Report Type: Other
  Country: GB (occurrence: GB)
  Receive Date: 20240112
  Receipt Date: 20240112
  Transmission Date: 20240410
  Serious: Yes (Hospitalization)
  Sender: FDA-Public Use
  Company Number: GB-MACLEODS PHARMA EU LTD-MAC2024045260

PATIENT

DRUGS (1)
  1. DONEPEZIL [Suspect]
     Active Substance: DONEPEZIL
     Indication: Product used for unknown indication
     Dosage: 5 MILLIGRAM, QD (AT NIGHT)
     Route: 065

REACTIONS (1)
  - Illness [Unknown]
